FAERS Safety Report 6711663-X (Version None)
Quarter: 2010Q2

REPORT INFORMATION
  Report Type: 
  Country: None (occurrence: None)
  Receive Date: 20100505
  Receipt Date: 20100421
  Transmission Date: 20101027
  Serious: Yes (Hospitalization)
  Sender: FDA-Public Use
  Company Number: FR-PFIZER INC-2010050773

PATIENT
  Sex: Female

DRUGS (2)
  1. FELDENE [Suspect]
     Dosage: UNK
     Route: 023
     Dates: start: 20050501, end: 20081201
  2. MESOCAIN [Suspect]
     Dosage: UNK
     Route: 023
     Dates: start: 20050501, end: 20081201

REACTIONS (2)
  - DERMATOMYOSITIS [None]
  - NEPHROTIC SYNDROME [None]
